FAERS Safety Report 5628064-8 (Version None)
Quarter: 2008Q1

REPORT INFORMATION
  Report Type: 
  Country: None (occurrence: None)
  Receive Date: 20080215
  Receipt Date: 20080205
  Transmission Date: 20080703
  Serious: Yes (Hospitalization)
  Sender: FDA-Public Use
  Company Number: US-AMGEN-US264266

PATIENT
  Sex: Female

DRUGS (8)
  1. ENBREL [Suspect]
     Indication: RHEUMATOID ARTHRITIS
     Route: 058
     Dates: start: 20030513, end: 20070715
  2. HUMIRA [Suspect]
     Route: 058
     Dates: start: 20050928, end: 20051209
  3. ORENCIA [Suspect]
     Route: 042
     Dates: start: 20070724, end: 20070820
  4. PREDNISONE TAB [Suspect]
     Route: 048
     Dates: start: 20030709
  5. DILTIAZEM [Concomitant]
     Route: 065
     Dates: start: 20060303
  6. PLAQUENIL [Concomitant]
     Route: 065
     Dates: start: 20030709
  7. FLOVENT [Concomitant]
     Route: 065
     Dates: start: 20030709
  8. CELEBREX [Concomitant]
     Route: 065
     Dates: start: 20030709, end: 20070828

REACTIONS (3)
  - DIVERTICULITIS [None]
  - MALNUTRITION [None]
  - RED BLOOD CELL COUNT DECREASED [None]
